FAERS Safety Report 16543402 (Version 1)
Quarter: 2019Q3

REPORT INFORMATION
  Report Type: Spontaneous
  Country: DE (occurrence: DE)
  Receive Date: 20190709
  Receipt Date: 20190709
  Transmission Date: 20191004
  Serious: Yes (Life-Threatening, Hospitalization)
  Sender: FDA-Public Use
  Company Number: DE-AXELLIA-002545

PATIENT
  Age: 51 Year
  Sex: Female
  Weight: 108 kg

DRUGS (9)
  1. PANTOPRAZOLE [Concomitant]
     Active Substance: PANTOPRAZOLE
     Dosage: 40 MG, 1-0-0-0,TABLETS
     Route: 048
  2. ESPUMISAN [Concomitant]
     Active Substance: DIMETHICONE
     Dosage: 20 GTT, 1-1-1-0, TROPFEN
     Route: 048
  3. FUROSEMIDE. [Concomitant]
     Active Substance: FUROSEMIDE
     Dosage: INJECTION / INFUSION SOLUTION,20 MG,2 2 2 0
     Route: 042
  4. GABAPENTIN. [Concomitant]
     Active Substance: GABAPENTIN
     Dosage: 100 MG, EVERY 2 DAYS, TABLETS
     Route: 048
  5. JONOSTERIL [Concomitant]
     Dosage: SOLUTION FOR INJECTION / INFUSION,FOR 24 H,MMOL / L
     Route: 042
  6. GENTAMICIN. [Suspect]
     Active Substance: GENTAMICIN
     Indication: PRODUCT USED FOR UNKNOWN INDICATION
     Dosage: 160 MG INJECTION / INFUSION SOLUTION
     Route: 042
  7. VIGANTOLETTEN 1000I.E. VITAMIN D3 [Concomitant]
     Dosage: 1000 IE, 1-0-0-0 CAPSULES
     Route: 048
  8. VANCOMYCIN [Suspect]
     Active Substance: VANCOMYCIN
     Indication: PRODUCT USED FOR UNKNOWN INDICATION
     Route: 042
  9. NALOXONE HYDROCHLORIDE/TILIDINE HYDROCHLORIDE [Concomitant]
     Dosage: 50 4 MG, 1-0-1-0, TABLETTEN
     Route: 048

REACTIONS (8)
  - General physical health deterioration [Unknown]
  - Anuria [Unknown]
  - Pathogen resistance [Unknown]
  - Medication error [Unknown]
  - Therapeutic drug monitoring analysis incorrectly performed [Unknown]
  - Bacterial test [Unknown]
  - Renal impairment [Unknown]
  - Systemic infection [Unknown]
